FAERS Safety Report 13005662 (Version 1)
Quarter: 2016Q4

REPORT INFORMATION
  Report Type: Report from Study
  Country: DE (occurrence: DE)
  Receive Date: 20161207
  Receipt Date: 20161207
  Transmission Date: 20170207
  Serious: Yes (Other)
  Sender: FDA-Public Use
  Company Number: DE-TEVA-717486GER

PATIENT

DRUGS (17)
  1. PROCARBAZIN [Suspect]
     Active Substance: PROCARBAZINE
     Route: 065
  2. TRASTUZUMAB [Suspect]
     Active Substance: TRASTUZUMAB
     Route: 065
  3. BLEOMYCIN [Suspect]
     Active Substance: BLEOMYCIN SULFATE
     Route: 065
  4. PERTUZUMAB [Suspect]
     Active Substance: PERTUZUMAB
     Route: 065
  5. PACLITAXEL. [Suspect]
     Active Substance: PACLITAXEL
     Route: 065
  6. EPIRUBICIN [Suspect]
     Active Substance: EPIRUBICIN
     Route: 065
  7. VINCRISTINE [Suspect]
     Active Substance: VINCRISTINE
     Route: 065
  8. LENOGRASTIM [Suspect]
     Active Substance: LENOGRASTIM
     Route: 065
  9. CYCLOPHOSPAMIDE [Suspect]
     Active Substance: CYCLOPHOSPHAMIDE
     Route: 065
  10. DOCETAXEL. [Suspect]
     Active Substance: DOCETAXEL
     Route: 065
  11. ETOPOSIDE. [Suspect]
     Active Substance: ETOPOSIDE
     Route: 065
  12. DEXAMETHASONE. [Suspect]
     Active Substance: DEXAMETHASONE
     Route: 065
  13. PEG-FILGRASTIM [Suspect]
     Active Substance: PEGFILGRASTIM
     Route: 065
  14. PREDNISOLONE. [Suspect]
     Active Substance: PREDNISOLONE
     Route: 065
  15. LIPEGFILGRASTIM [Suspect]
     Active Substance: LIPEGFILGRASTIM
     Route: 065
  16. FILGRASTIM [Suspect]
     Active Substance: FILGRASTIM
     Route: 065
  17. ADRIAMYCIN [Suspect]
     Active Substance: DOXORUBICIN HYDROCHLORIDE
     Route: 065

REACTIONS (3)
  - Toxicity to various agents [Unknown]
  - Disease progression [Unknown]
  - Febrile neutropenia [Unknown]
